FAERS Safety Report 5395457-6 (Version None)
Quarter: 2007Q3

REPORT INFORMATION
  Report Type: 
  Country: None (occurrence: None)
  Receive Date: 20070724
  Receipt Date: 20070723
  Transmission Date: 20080115
  Serious: Yes (Hospitalization)
  Sender: FDA-Public Use
  Company Number: A0665842A

PATIENT
  Sex: Female
  Weight: 54 kg

DRUGS (2)
  1. SERETIDE [Suspect]
     Indication: ASTHMA
     Route: 055
     Dates: start: 19970101
  2. DILACORON [Concomitant]
     Dates: start: 19970101

REACTIONS (4)
  - COUGH [None]
  - PNEUMONIA [None]
  - PRODUCTIVE COUGH [None]
  - RALES [None]
